FAERS Safety Report 10620049 (Version 2)
Quarter: 2015Q2

REPORT INFORMATION
  Report Type: Spontaneous
  Country: US (occurrence: None)
  Receive Date: 20141126
  Receipt Date: 20150507
  Transmission Date: 20150821
  Serious: Yes (Other)
  Sender: FDA-Public Use
  Company Number: ADR-2014-01253

PATIENT
  Age: 28 Year
  Sex: Male

DRUGS (2)
  1. ORAL BACLOFEN [Suspect]
     Active Substance: BACLOFEN
  2. LIORESAL [Suspect]
     Active Substance: BACLOFEN
     Indication: MUSCLE SPASTICITY
     Dosage: 780 MCG/DAY
     Route: 048

REACTIONS (9)
  - Device computer issue [None]
  - Device kink [None]
  - Device infusion issue [None]
  - Hyperreflexia [None]
  - Drug ineffective [None]
  - Muscle spasticity [None]
  - Condition aggravated [None]
  - Muscle spasms [None]
  - Hypotonia [None]

NARRATIVE: CASE EVENT DATE: 20140709
